FAERS Safety Report 5780968-1 (Version None)
Quarter: 2008Q2

REPORT INFORMATION
  Report Type: 
  Country: None (occurrence: None)
  Receive Date: 20080620
  Receipt Date: 20080616
  Transmission Date: 20081010
  Serious: Yes (Other)
  Sender: FDA-Public Use
  Company Number: AU-MERCK-0806AUS00055

PATIENT
  Age: 69 Year
  Sex: Female

DRUGS (1)
  1. TIMOPTIC [Suspect]
     Indication: INTRAOCULAR PRESSURE INCREASED
     Route: 047
     Dates: start: 19980101

REACTIONS (3)
  - BONE DISORDER [None]
  - FATIGUE [None]
  - INTRAOCULAR PRESSURE INCREASED [None]
